FAERS Safety Report 25818466 (Version 1)
Quarter: 2025Q3

REPORT INFORMATION
  Report Type: Spontaneous
  Country: US (occurrence: US)
  Receive Date: 20250918
  Receipt Date: 20250918
  Transmission Date: 20251020
  Serious: Yes (Hospitalization)
  Sender: GRIFOLS
  Company Number: US-IGSA-BIG0038080

PATIENT
  Age: 63 Year
  Sex: Male
  Weight: 50.8 kg

DRUGS (9)
  1. PROLASTIN-C LIQUID [Suspect]
     Active Substance: .ALPHA.1-PROTEINASE INHIBITOR HUMAN
     Indication: Alpha-1 antitrypsin deficiency
     Dosage: 3057 MILLIGRAM, Q.WK.
     Route: 042
  2. LEVALBUTEROL TARTRATE [Concomitant]
     Active Substance: LEVALBUTEROL TARTRATE
  3. XOPENEX HFA [Concomitant]
     Active Substance: LEVALBUTEROL TARTRATE
  4. OXYGEN [Concomitant]
     Active Substance: OXYGEN
  5. TRELEGY ELLIPTA [Concomitant]
     Active Substance: FLUTICASONE FUROATE\UMECLIDINIUM BROMIDE\VILANTEROL TRIFENATATE
  6. PREDNISONE [Concomitant]
     Active Substance: PREDNISONE
     Route: 048
  7. FLUNISOLIDE [Concomitant]
     Active Substance: FLUNISOLIDE
  8. CLONAZEPAM [Concomitant]
     Active Substance: CLONAZEPAM
     Route: 048
  9. ALKALOL [Concomitant]
     Route: 045

REACTIONS (3)
  - Influenza [Unknown]
  - Pneumonia [Unknown]
  - Intentional dose omission [Unknown]

NARRATIVE: CASE EVENT DATE: 20250910
